FAERS Safety Report 9387778 (Version 1)
Quarter: 2013Q3

REPORT INFORMATION
  Report Type: Report from Study
  Country: CA (occurrence: CA)
  Receive Date: 20130708
  Receipt Date: 20130708
  Transmission Date: 20140515
  Serious: Yes (Death, Hospitalization, Other)
  Sender: FDA-Public Use
  Company Number: CA-ROCHE-1244690

PATIENT
  Age: 38 Year
  Sex: Female

DRUGS (7)
  1. CAPECITABINE [Suspect]
     Indication: PRODUCT USED FOR UNKNOWN INDICATION
     Route: 065
  2. TYKERB [Suspect]
     Indication: PRODUCT USED FOR UNKNOWN INDICATION
     Route: 065
  3. TYKERB [Suspect]
     Dosage: TABLET
     Route: 048
  4. AREDIA [Concomitant]
     Dosage: POWDER FOR SOLUTION INTRAVENOUS
     Route: 042
  5. DEXAMETHASONE [Concomitant]
     Route: 065
  6. DILANTIN [Concomitant]
     Route: 065
  7. RESTORIL (CANADA) [Concomitant]
     Route: 065

REACTIONS (7)
  - Anticonvulsant drug level below therapeutic [Fatal]
  - Asthenia [Fatal]
  - Convulsion [Fatal]
  - Fatigue [Fatal]
  - Metastases to central nervous system [Fatal]
  - No therapeutic response [Fatal]
  - Palmar-plantar erythrodysaesthesia syndrome [Fatal]
